FAERS Safety Report 10087366 (Version 1)
Quarter: 2014Q2

REPORT INFORMATION
  Report Type: Spontaneous
  Country: US (occurrence: US)
  Receive Date: 20140418
  Receipt Date: 20140418
  Transmission Date: 20141212
  Serious: No
  Sender: FDA-Public Use
  Company Number: US-PURDUE-USA-2014-0112378

PATIENT
  Sex: Male

DRUGS (3)
  1. OXYCONTIN (NDA 22-272) [Suspect]
     Indication: LYME DISEASE
     Dosage: 160 MG, AM
     Route: 048
     Dates: start: 201208
  2. OXYCONTIN (NDA 22-272) [Suspect]
     Dosage: 80 MG, PM
     Route: 048
  3. OXYCODONE HYDROCHLORIDE (SIMILAR TO NDA 22-272) [Concomitant]
     Indication: BREAKTHROUGH PAIN

REACTIONS (3)
  - Pain [Not Recovered/Not Resolved]
  - Negative thoughts [Recovered/Resolved]
  - Inadequate analgesia [Not Recovered/Not Resolved]
